FAERS Safety Report 19443181 (Version 1)
Quarter: 2021Q2

REPORT INFORMATION
  Report Type: Spontaneous
  Country: JP (occurrence: JP)
  Receive Date: 20210621
  Receipt Date: 20210621
  Transmission Date: 20210717
  Serious: Yes (Hospitalization)
  Sender: FDA-Public Use
  Company Number: JP-SA-2021SA195257

PATIENT
  Sex: Male

DRUGS (5)
  1. ELPLAT [Suspect]
     Active Substance: OXALIPLATIN
     Dosage: UNK UNK, Q3W
     Route: 041
  2. CAPECITABINE. [Concomitant]
     Active Substance: CAPECITABINE
  3. ELPLAT [Suspect]
     Active Substance: OXALIPLATIN
     Dosage: UNK UNK, Q3W
     Route: 041
  4. ELPLAT [Suspect]
     Active Substance: OXALIPLATIN
     Indication: COLON CANCER
     Dosage: UNK UNK, Q3W
     Route: 041
  5. BEVACIZUMAB. [Concomitant]
     Active Substance: BEVACIZUMAB

REACTIONS (3)
  - Venoocclusive liver disease [Unknown]
  - Portal hypertension [Unknown]
  - Gastric varices haemorrhage [Recovering/Resolving]
